FAERS Safety Report 9459441 (Version 2)
Quarter: 2013Q3

REPORT INFORMATION
  Report Type: Report from Study
  Country: BR (occurrence: BR)
  Receive Date: 20130815
  Receipt Date: 20130913
  Transmission Date: 20140515
  Serious: Yes (Hospitalization, Other)
  Sender: FDA-Public Use
  Company Number: PHHY2013BR087787

PATIENT
  Sex: Female
  Weight: 57 kg

DRUGS (2)
  1. ACLASTA [Suspect]
     Indication: OSTEOPOROSIS
     Dosage: 5 MG, UNK
     Route: 042
     Dates: start: 2013
  2. CALCIUM [Concomitant]
     Dosage: UNK UKN, UNK
     Dates: start: 2011

REACTIONS (4)
  - Dengue fever [Recovered/Resolved]
  - Malaise [Unknown]
  - Decreased appetite [Recovered/Resolved]
  - Labyrinthitis [Unknown]
